FAERS Safety Report 18191273 (Version 1)
Quarter: 2020Q3

REPORT INFORMATION
  Report Type: Spontaneous
  Country: US (occurrence: US)
  Receive Date: 20200824
  Receipt Date: 20200824
  Transmission Date: 20201103
  Serious: Yes (Other)
  Sender: FDA-Public Use
  Company Number: None

PATIENT
  Age: 62 Year
  Sex: Male
  Weight: 122.47 kg

DRUGS (1)
  1. ALBUTEROL HFA [Suspect]
     Active Substance: ALBUTEROL SULFATE
     Indication: CHRONIC OBSTRUCTIVE PULMONARY DISEASE
     Route: 055
     Dates: start: 20170413

REACTIONS (2)
  - Therapeutic product ineffective [None]
  - Product substitution issue [None]

NARRATIVE: CASE EVENT DATE: 20170523
